FAERS Safety Report 7610022-5 (Version None)
Quarter: 2011Q3

REPORT INFORMATION
  Report Type: 
  Country: None (occurrence: None)
  Receive Date: 20110714
  Receipt Date: 20110119
  Transmission Date: 20111222
  Serious: No
  Sender: FDA-Public Use
  Company Number: US-BAYER-2011-033316

PATIENT
  Sex: Female
  Weight: 103 kg

DRUGS (5)
  1. ACETYLSALICYLIC ACID SRT [Concomitant]
  2. UNSPECIFIED OSTEOARTHRITIS MEDICATION [Concomitant]
  3. CELEBREX [Concomitant]
  4. ONE-A-DAY WEIGHT SMART ADVANCED [Suspect]
     Indication: VITAMIN SUPPLEMENTATION
     Dosage: UNK
     Route: 048
     Dates: end: 20100401
  5. SYNTHROID [Concomitant]

REACTIONS (1)
  - BONE DISORDER [None]
